FAERS Safety Report 7565176-6 (Version None)
Quarter: 2011Q2

REPORT INFORMATION
  Report Type: 
  Country: None (occurrence: None)
  Receive Date: 20110622
  Receipt Date: 20110418
  Transmission Date: 20111010
  Serious: Yes (Other)
  Sender: FDA-Public Use
  Company Number: PHHY2011GB42526

PATIENT

DRUGS (1)
  1. CLOZAPINE [Suspect]

REACTIONS (6)
  - ABNORMAL BEHAVIOUR [None]
  - NOCTURIA [None]
  - INCONTINENCE [None]
  - POSTURING [None]
  - POLLAKIURIA [None]
  - ENURESIS [None]
